FAERS Safety Report 21720711 (Version 1)
Quarter: 2022Q4

REPORT INFORMATION
  Report Type: Spontaneous
  Country: US (occurrence: US)
  Receive Date: 20221213
  Receipt Date: 20221213
  Transmission Date: 20230113
  Serious: No
  Sender: FDA-Public Use
  Company Number: US-TEVA-2022-US-2832720

PATIENT
  Age: 52 Year
  Sex: Female

DRUGS (2)
  1. CLOZAPINE [Suspect]
     Active Substance: CLOZAPINE
     Indication: Bipolar disorder
     Dosage: 50 MILLIGRAM DAILY; AT BEDTIME
     Route: 065
  2. CLOZARIL [Suspect]
     Active Substance: CLOZAPINE
     Indication: Product used for unknown indication
     Dosage: 200 MILLIGRAM DAILY; FOR 10 YEARS
     Route: 065

REACTIONS (2)
  - Neutrophil count abnormal [Unknown]
  - Product use in unapproved indication [Unknown]
